FAERS Safety Report 8465280-4 (Version None)
Quarter: 2012Q2

REPORT INFORMATION
  Report Type: 
  Country: None (occurrence: None)
  Receive Date: 20120626
  Receipt Date: 20120618
  Transmission Date: 20120825
  Serious: Yes (Other)
  Sender: FDA-Public Use
  Company Number: JP-JNJFOC-20120611609

PATIENT
  Sex: Female

DRUGS (8)
  1. DORIPENEM MONOHYDRATE [Suspect]
     Indication: WOUND INFECTION
     Route: 041
     Dates: start: 20120322, end: 20120328
  2. GENTAMICIN SULFATE [Concomitant]
     Indication: WOUND INFECTION
     Route: 065
     Dates: start: 20120320, end: 20120321
  3. DIPRIVAN [Concomitant]
     Route: 065
     Dates: start: 20120321, end: 20120326
  4. DORIPENEM MONOHYDRATE [Suspect]
     Indication: POSTOPERATIVE WOUND INFECTION
     Route: 041
     Dates: start: 20120322, end: 20120328
  5. LASIX [Concomitant]
     Route: 065
     Dates: start: 20120322
  6. KAKODIN [Concomitant]
     Route: 065
     Dates: start: 20120321, end: 20120327
  7. CEFMETAZOLE SODIUM [Concomitant]
     Route: 065
     Dates: start: 20120315, end: 20120319
  8. GENTAMICIN SULFATE [Concomitant]
     Indication: POSTOPERATIVE WOUND INFECTION
     Route: 065
     Dates: start: 20120320, end: 20120321

REACTIONS (3)
  - ALANINE AMINOTRANSFERASE INCREASED [None]
  - CIRCULATORY COLLAPSE [None]
  - ASPARTATE AMINOTRANSFERASE INCREASED [None]
